FAERS Safety Report 9237335 (Version 2)
Quarter: 2013Q2

REPORT INFORMATION
  Report Type: Report from Study
  Country: GB (occurrence: GB)
  Receive Date: 20130417
  Receipt Date: 20130426
  Transmission Date: 20140414
  Serious: Yes (Death)
  Sender: FDA-Public Use
  Company Number: GB-AMGEN-GBRCT2012041100

PATIENT
  Age: 80 Year
  Sex: Male
  Weight: 73 kg

DRUGS (3)
  1. ETANERCEPT [Suspect]
     Indication: RHEUMATOID ARTHRITIS
     Dosage: 25 MG, 2X/WEEK
     Dates: start: 20040831, end: 201010
  2. METHOTREXATE SODIUM [Concomitant]
     Dosage: UNK
  3. PREDNISOLONE [Concomitant]
     Dosage: 2.5 MG, 1X/DAY

REACTIONS (3)
  - Hypertension [Fatal]
  - Rheumatoid arthritis [Fatal]
  - Bronchopneumonia [Fatal]
